FAERS Safety Report 24692614 (Version 1)
Quarter: 2024Q4

REPORT INFORMATION
  Report Type: Spontaneous
  Country: US (occurrence: None)
  Receive Date: 20241203
  Receipt Date: 20241203
  Transmission Date: 20250114
  Serious: No
  Sender: Public
  Company Number: None

PATIENT
  Age: 56 Year
  Sex: Male
  Weight: 123 kg

DRUGS (1)
  1. SITAGLIPTIN [Suspect]
     Active Substance: SITAGLIPTIN
     Indication: Diabetes mellitus
     Dosage: 100.00 MG DAILY ORAL
     Route: 048
     Dates: start: 20240508

REACTIONS (1)
  - Palpitations [None]

NARRATIVE: CASE EVENT DATE: 20240822
